FAERS Safety Report 7519453-5 (Version None)
Quarter: 2011Q2

REPORT INFORMATION
  Report Type: 
  Country: None (occurrence: None)
  Receive Date: 20110602
  Receipt Date: 20110504
  Transmission Date: 20111010
  Serious: Yes (Other)
  Sender: FDA-Public Use
  Company Number: DE-B.I. PHARMACEUTICALS,INC./RIDGEFIELD-2011-DE-02881DE

PATIENT
  Sex: Male

DRUGS (3)
  1. PANTOZOL 20 [Concomitant]
     Indication: PROPHYLAXIS
     Dosage: 1 ANZ
     Route: 048
     Dates: start: 20110406, end: 20110505
  2. PRADAXA [Suspect]
     Indication: THROMBOSIS PROPHYLAXIS
     Dosage: 2 ANZ
     Route: 048
     Dates: start: 20110406, end: 20110505
  3. NOVAMINSULFON 500 [Concomitant]
     Indication: ANALGESIC THERAPY
     Dosage: 4X2 ANZ
     Dates: start: 20110406, end: 20110505

REACTIONS (3)
  - IMPAIRED HEALING [None]
  - SYNOVITIS [None]
  - FISTULA [None]
